FAERS Safety Report 8797783 (Version 1)
Quarter: 2012Q4

REPORT INFORMATION
  Report Type: Spontaneous
  Country: US (occurrence: None)
  Receive Date: 20120917
  Receipt Date: 20120917
  Transmission Date: 20130627
  Serious: No
  Sender: FDA-Public Use
  Company Number: None

PATIENT
  Sex: Male

DRUGS (1)
  1. NEXAVAR [Suspect]
     Route: 048
     Dates: start: 20120414, end: 201206

REACTIONS (1)
  - Palmar-plantar erythrodysaesthesia syndrome [None]
